FAERS Safety Report 19433378 (Version 1)
Quarter: 2021Q2

REPORT INFORMATION
  Report Type: Spontaneous
  Country: FR (occurrence: FR)
  Receive Date: 20210617
  Receipt Date: 20210617
  Transmission Date: 20210717
  Serious: Yes (Hospitalization, Congenital Anomaly)
  Sender: FDA-Public Use
  Company Number: FR-PFIZER INC-2021653232

PATIENT
  Sex: Female
  Weight: 3.12 kg

DRUGS (2)
  1. FLUOROURACIL. [Suspect]
     Active Substance: FLUOROURACIL
     Indication: COLON CANCER
     Dosage: 5300 MG, CYCLIC
     Dates: start: 20171116, end: 20180419
  2. OXALIPLATIN. [Suspect]
     Active Substance: OXALIPLATIN
     Indication: COLON CANCER
     Dosage: 12 CYCLES 160 MG X6, 145X2, 80X4
     Dates: start: 20171116, end: 20180419

REACTIONS (2)
  - Cleft palate [Not Recovered/Not Resolved]
  - Paternal exposure timing unspecified [Not Recovered/Not Resolved]

NARRATIVE: CASE EVENT DATE: 20210504
